FAERS Safety Report 18412546 (Version 6)
Quarter: 2021Q4

REPORT INFORMATION
  Report Type: Report from Study
  Country: US (occurrence: US)
  Receive Date: 20201022
  Receipt Date: 20211220
  Transmission Date: 20220303
  Serious: No
  Sender: FDA-Public Use
  Company Number: NVSC2020US278359

PATIENT
  Sex: Female

DRUGS (2)
  1. KESIMPTA [Suspect]
     Active Substance: OFATUMUMAB
     Indication: Multiple sclerosis
     Dosage: 20 MG, QW
     Route: 058
     Dates: start: 20201005
  2. GABAPENTIN [Concomitant]
     Active Substance: GABAPENTIN
     Indication: Breast pain
     Dosage: 300 MG, QD
     Route: 065

REACTIONS (2)
  - Injection site injury [Recovered/Resolved]
  - Injection site pain [Recovered/Resolved]
